FAERS Safety Report 7120846-9 (Version None)
Quarter: 2010Q4

REPORT INFORMATION
  Report Type: 
  Country: None (occurrence: None)
  Receive Date: 20101124
  Receipt Date: 20101112
  Transmission Date: 20110411
  Serious: Yes (Hospitalization, Other)
  Sender: FDA-Public Use
  Company Number: US-PFIZER INC-US-WYE-H17329110

PATIENT
  Sex: Female
  Weight: 56.7 kg

DRUGS (4)
  1. PRISTIQ [Suspect]
     Indication: DEPRESSION
     Dosage: 50 MG, 1X/DAY
     Dates: start: 20100801
  2. PAROXETINE [Suspect]
     Indication: DEPRESSION
     Dosage: 20 MG, 1X/DAY
     Dates: end: 20101101
  3. INSULIN [Concomitant]
     Dosage: UNK
  4. KLONOPIN [Concomitant]
     Indication: SLEEP DISORDER
     Dosage: 0.5 MG, UNK

REACTIONS (8)
  - DEPENDENCE [None]
  - DEPRESSION [None]
  - FATIGUE [None]
  - INDIFFERENCE [None]
  - MEDICATION RESIDUE [None]
  - SUICIDAL IDEATION [None]
  - THINKING ABNORMAL [None]
  - WITHDRAWAL SYNDROME [None]
